FAERS Safety Report 12158366 (Version 1)
Quarter: 2016Q1

REPORT INFORMATION
  Report Type: Spontaneous
  Country: US (occurrence: US)
  Receive Date: 20160308
  Receipt Date: 20160308
  Transmission Date: 20160526
  Serious: No
  Sender: FDA-Public Use
  Company Number: US-JNJFOC-20140618759

PATIENT
  Age: 79 Year
  Sex: Female
  Weight: 63 kg

DRUGS (10)
  1. VALTREX [Concomitant]
     Active Substance: VALACYCLOVIR HYDROCHLORIDE
  2. VITAMIN D [Concomitant]
     Active Substance: CHOLECALCIFEROL
  3. UBIQUINOL [Concomitant]
     Active Substance: UBIQUINOL
  4. ARMOUR THYROID [Concomitant]
     Active Substance: THYROID, PORCINE
  5. PANTOPRAZOLE [Concomitant]
     Active Substance: PANTOPRAZOLE SODIUM
  6. IMBRUVICA [Suspect]
     Active Substance: IBRUTINIB
     Indication: CHRONIC LYMPHOCYTIC LEUKAEMIA
     Dosage: 3 CAPSULES DAILY
     Route: 048
     Dates: start: 201403
  7. WARFARIN [Concomitant]
     Active Substance: WARFARIN
     Indication: THROMBOSIS
     Dates: start: 20131203, end: 20141110
  8. PROBIOTIC [Concomitant]
     Active Substance: PROBIOTICS NOS
  9. ALOE [Concomitant]
     Active Substance: ALOE
  10. ALLOPURINOL. [Concomitant]
     Active Substance: ALLOPURINOL

REACTIONS (15)
  - Nasal congestion [Unknown]
  - Haemoptysis [Unknown]
  - Pyrexia [Unknown]
  - Arthralgia [Not Recovered/Not Resolved]
  - Fatigue [Not Recovered/Not Resolved]
  - Flushing [Unknown]
  - Bone pain [Unknown]
  - Infection in an immunocompromised host [Not Recovered/Not Resolved]
  - Epistaxis [Unknown]
  - Depressed mood [Unknown]
  - Skin lesion [Recovered/Resolved]
  - Irritability [Unknown]
  - Skin infection [Recovered/Resolved]
  - Headache [Unknown]
  - Nasal dryness [Unknown]

NARRATIVE: CASE EVENT DATE: 201403
